FAERS Safety Report 6396678-6 (Version None)
Quarter: 2009Q4

REPORT INFORMATION
  Report Type: 
  Country: None (occurrence: None)
  Receive Date: 20091012
  Receipt Date: 20091001
  Transmission Date: 20100525
  Serious: Yes (Life-Threatening, Hospitalization)
  Sender: FDA-Public Use
  Company Number: IL-WYE-H11329209

PATIENT
  Age: 3 Year
  Sex: Female

DRUGS (12)
  1. TYGACIL [Suspect]
     Indication: SEPSIS
     Dosage: EMPIRIC DOSE 16 MG
     Route: 042
  2. TYGACIL [Suspect]
     Indication: ACINETOBACTER INFECTION
     Dosage: UNKNOWN
     Route: 042
  3. TYGACIL [Suspect]
     Indication: CANDIDIASIS
  4. TYGACIL [Suspect]
     Indication: STENOTROPHOMONAS INFECTION
  5. TYGACIL [Suspect]
     Indication: MULTIPLE-DRUG RESISTANCE
  6. VANCOMYCIN [Concomitant]
     Dosage: UNKNOWN
     Route: 065
  7. AMIKACIN [Concomitant]
     Dosage: UKNOWN
     Route: 065
  8. COLIRACIN [Concomitant]
     Dosage: UNKNOWN
     Route: 065
  9. AZITHROMYCIN [Concomitant]
     Dosage: UNKNOWN
     Route: 065
  10. RESPRIM [Concomitant]
     Dosage: UNKNOWN
     Route: 065
  11. VORICONAZOLE [Concomitant]
     Dosage: NOT PROVIDED
     Route: 065
  12. CASPOFUNGIN ACETATE [Concomitant]
     Dosage: UNKNOWN
     Route: 065

REACTIONS (6)
  - ACINETOBACTER INFECTION [None]
  - CANDIDIASIS [None]
  - CLOSTRIDIUM DIFFICILE COLITIS [None]
  - MULTIPLE-DRUG RESISTANCE [None]
  - SEPSIS [None]
  - STENOTROPHOMONAS INFECTION [None]
